FAERS Safety Report 6140963-X (Version None)
Quarter: 2009Q2

REPORT INFORMATION
  Report Type: 
  Country: None (occurrence: None)
  Receive Date: 20090402
  Receipt Date: 20090325
  Transmission Date: 20091009
  Serious: Yes (Death, Other)
  Sender: FDA-Public Use
  Company Number: GB-AVENTIS-200911570EU

PATIENT
  Age: 73 Year
  Sex: Female

DRUGS (6)
  1. CLEXANE [Suspect]
     Route: 058
     Dates: start: 20081226, end: 20090108
  2. AMOXICILLIN [Concomitant]
     Indication: LOWER RESPIRATORY TRACT INFECTION
     Route: 048
     Dates: start: 20081231, end: 20090105
  3. AUGMENTIN '125' [Concomitant]
     Indication: LOWER RESPIRATORY TRACT INFECTION
     Route: 048
     Dates: start: 20081226, end: 20081231
  4. ACETAMINOPHEN W/ CODEINE [Concomitant]
     Dosage: DOSE: 2DF
     Route: 048
  5. FRUSEMIDE [Concomitant]
     Route: 048
  6. MIRTAZAPINE [Concomitant]
     Route: 048

REACTIONS (2)
  - HEPARIN-INDUCED THROMBOCYTOPENIA [None]
  - PULMONARY EMBOLISM [None]
